FAERS Safety Report 4397145-1 (Version None)
Quarter: 2004Q3

REPORT INFORMATION
  Report Type: 
  Country: None (occurrence: None)
  Receive Date: 20040708
  Receipt Date: 20040625
  Transmission Date: 20050211
  Serious: Yes (Hospitalization)
  Sender: FDA-Public Use
  Company Number: 2004AP02854

PATIENT
  Age: 76 Year
  Sex: Male
  Weight: 60.8 kg

DRUGS (3)
  1. ZOLADEX [Suspect]
     Indication: PROSTATE CANCER
     Dosage: 3.6 MG Q4WK SQ
     Route: 058
     Dates: start: 20040414
  2. TALION [Concomitant]
  3. SOLU-MEDROL [Concomitant]

REACTIONS (5)
  - DISEASE RECURRENCE [None]
  - ERYTHEMA [None]
  - FACE OEDEMA [None]
  - PERIORBITAL OEDEMA [None]
  - PHOTOSENSITIVITY REACTION [None]
